FAERS Safety Report 13562439 (Version 1)
Quarter: 2017Q2

REPORT INFORMATION
  Report Type: Spontaneous
  Country: DK (occurrence: DK)
  Receive Date: 20170519
  Receipt Date: 20170519
  Transmission Date: 20170830
  Serious: Yes (Hospitalization)
  Sender: FDA-Public Use
  Company Number: DK-ASTRAZENECA-2017SE52377

PATIENT
  Age: 55 Year
  Sex: Female
  Weight: 88 kg

DRUGS (4)
  1. RIVOTRIL [Concomitant]
     Active Substance: CLONAZEPAM
     Indication: PRODUCT USED FOR UNKNOWN INDICATION
     Route: 048
     Dates: start: 1992, end: 2009
  2. ZYPREXA [Concomitant]
     Active Substance: OLANZAPINE
     Indication: PRODUCT USED FOR UNKNOWN INDICATION
     Route: 048
     Dates: start: 2007, end: 2009
  3. SEROQUEL [Suspect]
     Active Substance: QUETIAPINE FUMARATE
     Indication: PRODUCT USED FOR UNKNOWN INDICATION
     Route: 048
     Dates: start: 2009, end: 2010
  4. CISORDINOL [Concomitant]
     Active Substance: ZUCLOPENTHIXOL
     Indication: SEDATIVE THERAPY
     Route: 048
     Dates: start: 200912

REACTIONS (5)
  - Hallucination [Unknown]
  - Fatigue [Unknown]
  - Indifference [Unknown]
  - Sexual dysfunction [Unknown]
  - Malaise [Unknown]

NARRATIVE: CASE EVENT DATE: 2009
